FAERS Safety Report 4327549-4 (Version None)
Quarter: 2004Q1

REPORT INFORMATION
  Report Type: 
  Country: None (occurrence: None)
  Receive Date: 20040325
  Receipt Date: 20040311
  Transmission Date: 20041129
  Serious: Yes (Hospitalization)
  Sender: FDA-Public Use
  Company Number: 235575

PATIENT
  Sex: Male
  Weight: 1.9 kg

DRUGS (4)
  1. ACTRAPID PENFILL HM(GE) 3 ML (INSULIN HUMAN) SOLUTION FOR INJECTION, 1 [Suspect]
     Indication: DIABETES MELLITUS INSULIN-DEPENDENT
     Dosage: 24 IU, QD, INTRAUTERINE
     Route: 015
     Dates: start: 20030603
  2. PROTAPHANE PENFILL HM (GE) 3 ML (INSULIN HUMAN) SUSPENSION FOR INJECTI [Concomitant]
  3. MARCAINE [Concomitant]
  4. ALDOMET [Concomitant]

REACTIONS (5)
  - CAESAREAN SECTION [None]
  - DRUG EXPOSURE DURING PREGNANCY [None]
  - HYPERINSULINAEMIA [None]
  - HYPOGLYCAEMIA NEONATAL [None]
  - PREMATURE BABY [None]
